FAERS Safety Report 18442378 (Version 1)
Quarter: 2020Q4

REPORT INFORMATION
  Report Type: Spontaneous
  Country: CN (occurrence: CN)
  Receive Date: 20201029
  Receipt Date: 20201029
  Transmission Date: 20210114
  Serious: Yes (Life-Threatening)
  Sender: FDA-Public Use
  Company Number: CN-IGSA-BIG0011864

PATIENT
  Age: 46 Year
  Sex: Male
  Weight: 50 kg

DRUGS (1)
  1. HUMAN ALBUMIN GRIFOLS 20% [Suspect]
     Active Substance: ALBUMIN HUMAN
     Indication: HYPOPROTEINAEMIA
     Dosage: 10 GRAM, TOTAL
     Route: 042
     Dates: start: 20201021, end: 20201021

REACTIONS (7)
  - Pupillary reflex impaired [Recovered/Resolved]
  - Heart rate decreased [Recovered/Resolved]
  - Mydriasis [Recovered/Resolved]
  - Cardiac arrest [Recovered/Resolved]
  - Respiratory rate decreased [Recovered/Resolved]
  - Coma [Recovered/Resolved]
  - Respiratory arrest [Recovered/Resolved]

NARRATIVE: CASE EVENT DATE: 20201021
